FAERS Safety Report 5099151-0 (Version None)
Quarter: 2006Q3

REPORT INFORMATION
  Report Type: 
  Country: None (occurrence: None)
  Receive Date: 20060731
  Receipt Date: 20050909
  Transmission Date: 20061208
  Serious: Yes (Other)
  Sender: FDA-Public Use
  Company Number: 217132

PATIENT
  Age: 13 Year
  Sex: Female

DRUGS (1)
  1. RITUXAN [Suspect]
     Indication: WEGENER'S GRANULOMATOSIS
     Dosage: 375 MG/M2, 1/WEEK; INTRAVENOUS
     Route: 042
     Dates: start: 20050429

REACTIONS (2)
  - POLYARTHRITIS [None]
  - SERUM SICKNESS [None]
